FAERS Safety Report 13739462 (Version 1)
Quarter: 2017Q3

REPORT INFORMATION
  Report Type: Spontaneous
  Country: DE (occurrence: DE)
  Receive Date: 20170710
  Receipt Date: 20170710
  Transmission Date: 20171127
  Serious: Yes (Disabling)
  Sender: FDA-Public Use
  Company Number: GXKR2017DE003555

PATIENT
  Age: 46 Year
  Sex: Male
  Weight: 186 kg

DRUGS (1)
  1. CETIRIZIN HEXAL [Suspect]
     Active Substance: CETIRIZINE HYDROCHLORIDE
     Indication: SEASONAL ALLERGY
     Dosage: 1 DF, ONCE DAILY
     Route: 048
     Dates: start: 20160215, end: 20170602

REACTIONS (2)
  - Walking aid user [Recovered/Resolved]
  - Arthralgia [Recovered/Resolved]

NARRATIVE: CASE EVENT DATE: 20160520
